FAERS Safety Report 19230567 (Version 1)
Quarter: 2021Q2

REPORT INFORMATION
  Report Type: Spontaneous
  Country: AU (occurrence: AU)
  Receive Date: 20210507
  Receipt Date: 20210507
  Transmission Date: 20210717
  Serious: Yes (Hospitalization, Other)
  Sender: FDA-Public Use
  Company Number: AU-ACCORD-224245

PATIENT
  Age: 84 Year
  Sex: Female

DRUGS (1)
  1. LETROZOLE. [Suspect]
     Active Substance: LETROZOLE
     Indication: BREAST CANCER

REACTIONS (3)
  - Acute kidney injury [Recovered/Resolved]
  - Oliguria [Recovered/Resolved]
  - Tubulointerstitial nephritis [Recovered/Resolved]
